FAERS Safety Report 12609179 (Version 1)
Quarter: 2016Q3

REPORT INFORMATION
  Report Type: Spontaneous
  Country: FR (occurrence: FR)
  Receive Date: 20160801
  Receipt Date: 20160801
  Transmission Date: 20161109
  Serious: Yes (Hospitalization)
  Sender: FDA-Public Use
  Company Number: FR-ROCHE-1804377

PATIENT
  Age: 50 Year
  Sex: Female

DRUGS (15)
  1. IFOSFAMIDE EG [Suspect]
     Active Substance: IFOSFAMIDE
     Indication: B-CELL LYMPHOMA
     Route: 042
     Dates: start: 20160517, end: 20160629
  2. DIFFU K [Concomitant]
     Active Substance: POTASSIUM CHLORIDE
     Dosage: 2-0-2
     Route: 065
  3. DOLIPRANE [Concomitant]
     Active Substance: ACETAMINOPHEN
     Dosage: UNTIL 4 TABLETS/DAY IF NECESSARY
     Route: 065
  4. ZELITREX [Concomitant]
     Active Substance: VALACYCLOVIR HYDROCHLORIDE
     Dosage: 1-0-1
     Route: 065
  5. PROGRAF [Concomitant]
     Active Substance: TACROLIMUS\TACROLIMUS ANHYDROUS
     Dosage: 1.5-0-1
     Route: 065
  6. ETOPOSIDE MYLAN [Suspect]
     Active Substance: ETOPOSIDE
     Indication: B-CELL LYMPHOMA
     Route: 042
     Dates: start: 20160517, end: 20160629
  7. INIPOMP [Concomitant]
     Active Substance: PANTOPRAZOLE SODIUM
     Dosage: 0-0-1
     Route: 065
  8. DUPHALAC (FRANCE) [Concomitant]
     Active Substance: LACTULOSE
     Dosage: 1 TO 2 BAG/DAY
     Route: 065
  9. BICARBONATE [Concomitant]
     Active Substance: BICARBONATE ION
     Dosage: MOUTHWASH
     Route: 002
  10. DEXAMETHASONE MYLAN [Suspect]
     Active Substance: DEXAMETHASONE
     Indication: PRODUCT USED FOR UNKNOWN INDICATION
     Route: 048
     Dates: start: 20160517, end: 20160629
  11. FUNGIZONE [Concomitant]
     Active Substance: AMPHOTERICIN B
     Dosage: MOUTHWASH
     Route: 002
  12. MABTHERA [Suspect]
     Active Substance: RITUXIMAB
     Indication: B-CELL LYMPHOMA
     Route: 042
     Dates: start: 20160517, end: 20160629
  13. LEVOTHYROX [Concomitant]
     Active Substance: LEVOTHYROXINE
     Dosage: 1-0-0
     Route: 065
  14. DAFALGAN CODEINE [Concomitant]
     Active Substance: ACETAMINOPHEN\CODEINE PHOSPHATE
     Dosage: UNTIL 4 TABLETS/DAY IF NECESSARY
     Route: 065
  15. LYRICA [Concomitant]
     Active Substance: PREGABALIN
     Dosage: 1-0-0
     Route: 065

REACTIONS (1)
  - Encephalopathy [Recovered/Resolved]

NARRATIVE: CASE EVENT DATE: 20160701
